FAERS Safety Report 4745508-4 (Version None)
Quarter: 2005Q3

REPORT INFORMATION
  Report Type: 
  Country: None (occurrence: None)
  Receive Date: 20050815
  Receipt Date: 20050623
  Transmission Date: 20060218
  Serious: Yes (Death, Other)
  Sender: FDA-Public Use
  Company Number: US-MERCK-0506USA03403

PATIENT
  Age: 70 Year
  Sex: Male
  Weight: 95 kg

DRUGS (2)
  1. VIOXX [Suspect]
     Indication: ARTHRALGIA
     Route: 048
     Dates: start: 20000217, end: 20040619
  2. INSULIN [Concomitant]
     Route: 065

REACTIONS (3)
  - DEATH [None]
  - MYOCARDIAL INFARCTION [None]
  - SILENT MYOCARDIAL INFARCTION [None]
